FAERS Safety Report 6151894-3 (Version None)
Quarter: 2009Q2

REPORT INFORMATION
  Report Type: 
  Country: None (occurrence: None)
  Receive Date: 20090408
  Receipt Date: 20090330
  Transmission Date: 20091009
  Serious: Yes (Death)
  Sender: FDA-Public Use
  Company Number: 2004JP002263

PATIENT
  Age: 14 Month
  Sex: Male

DRUGS (6)
  1. PROGRAF [Suspect]
     Indication: CORD BLOOD TRANSPLANT THERAPY
  2. BUSULFAN (BUSULFAN) [Concomitant]
  3. CYCLOPHOSPHAMIDE [Concomitant]
  4. ATGAM [Concomitant]
  5. CYCLOSPORINE [Concomitant]
  6. METHYLPREDNISOLONE 16MG TAB [Concomitant]

REACTIONS (3)
  - INTESTINAL ISCHAEMIA [None]
  - MULTI-ORGAN FAILURE [None]
  - THROMBOTIC MICROANGIOPATHY [None]
